FAERS Safety Report 20126130 (Version 1)
Quarter: 2021Q4

REPORT INFORMATION
  Report Type: Spontaneous
  Country: NL (occurrence: NL)
  Receive Date: 20211129
  Receipt Date: 20211129
  Transmission Date: 20220303
  Serious: Yes (Other)
  Sender: FDA-Public Use
  Company Number: NL-EXELA PHARMA SCIENCES, LLC-2021EXL00037

PATIENT
  Age: 57 Year
  Sex: Male

DRUGS (3)
  1. NEOSTIGMINE [Suspect]
     Active Substance: NEOSTIGMINE
     Indication: Abdominal distension
     Dosage: 2.5 MG, 1X/HOUR FOR 24 HR
     Route: 065
  2. DEXAMETHASONE [Suspect]
     Active Substance: DEXAMETHASONE
     Indication: COVID-19 pneumonia
     Dosage: 6 MG, 1X/DAY
     Route: 065
  3. TOCILIZUMAB [Suspect]
     Active Substance: TOCILIZUMAB
     Indication: COVID-19 pneumonia
     Dosage: 8 MG/KG
     Route: 065

REACTIONS (1)
  - Large intestine perforation [Recovered/Resolved]
